FAERS Safety Report 9147444 (Version 2)
Quarter: 2013Q2

REPORT INFORMATION
  Report Type: Spontaneous
  Country: IT (occurrence: IT)
  Receive Date: 20130307
  Receipt Date: 20130417
  Transmission Date: 20140414
  Serious: Yes (Hospitalization)
  Sender: FDA-Public Use
  Company Number: IT-PFIZER INC-2013078839

PATIENT
  Age: 41 Year
  Sex: Female

DRUGS (3)
  1. TORVAST [Suspect]
     Indication: INTENTIONAL OVERDOSE
     Dosage: 35 DF, UNIT DOSES TOTAL
     Route: 048
     Dates: start: 20130225, end: 20130225
  2. DEPAKIN CHRONO [Suspect]
     Indication: INTENTIONAL OVERDOSE
     Dosage: 40 DF, UNIT DOSES TOTAL
     Route: 048
     Dates: start: 20130225, end: 20130225
  3. CIPRALEX [Suspect]
     Indication: INTENTIONAL OVERDOSE
     Dosage: 70 DF, UNIT DOSES TOTAL
     Route: 048
     Dates: start: 20130225, end: 20130225

REACTIONS (5)
  - Intentional overdose [Recovering/Resolving]
  - Intentional self-injury [Recovering/Resolving]
  - Electrocardiogram QT prolonged [Recovering/Resolving]
  - Hypotension [Recovering/Resolving]
  - Syncope [Recovering/Resolving]
